FAERS Safety Report 4711559-9 (Version None)
Quarter: 2005Q3

REPORT INFORMATION
  Report Type: 
  Country: None (occurrence: None)
  Receive Date: 20050712
  Receipt Date: 20050525
  Transmission Date: 20060218
  Serious: Yes (Other)
  Sender: FDA-Public Use
  Company Number: BE-BOEHRINGER INGELHEIM PHARMACEUTICALS, INC.-2005-BL-00208BL

PATIENT
  Sex: Male
  Weight: 90 kg

DRUGS (2)
  1. MICARDIS [Suspect]
     Indication: HYPERTENSION
     Route: 048
     Dates: start: 20050520, end: 20050524
  2. ADALAT [Concomitant]
     Indication: HYPERTENSION
     Route: 048

REACTIONS (2)
  - DYSPNOEA [None]
  - LOCALISED OEDEMA [None]
